FAERS Safety Report 18629984 (Version 13)
Quarter: 2023Q4

REPORT INFORMATION
  Report Type: Spontaneous
  Country: US (occurrence: US)
  Receive Date: 20201217
  Receipt Date: 20231218
  Transmission Date: 20240109
  Serious: Yes (Other)
  Sender: FDA-Public Use
  Company Number: US-PFIZER INC-2020495096

PATIENT
  Age: 77 Year
  Sex: Female

DRUGS (2)
  1. IBRANCE [Suspect]
     Active Substance: PALBOCICLIB
     Indication: Breast cancer female
     Dosage: 125 MG
     Route: 048
  2. IBRANCE [Suspect]
     Active Substance: PALBOCICLIB
     Dosage: 150 MG, CYCLIC (1 TABLET DAILY FOR 21 DAYS, THEN STOP FOR 7 DAYS. REPEAT CYCLE EVERY 28 DAYS)
     Route: 048

REACTIONS (6)
  - Deafness [Unknown]
  - Off label use [Unknown]
  - Dysphagia [Unknown]
  - Hypoacusis [Not Recovered/Not Resolved]
  - Hot flush [Unknown]
  - Fatigue [Unknown]
